FAERS Safety Report 17963671 (Version 1)
Quarter: 2020Q2

REPORT INFORMATION
  Report Type: Report from Study
  Country: CA (occurrence: CA)
  Receive Date: 20200630
  Receipt Date: 20200630
  Transmission Date: 20200714
  Serious: Yes (Other)
  Sender: FDA-Public Use
  Company Number: CA-GLAXOSMITHKLINE-CA2019GSK084323

PATIENT
  Sex: Female

DRUGS (6)
  1. TEGRETOL [Suspect]
     Active Substance: CARBAMAZEPINE
     Indication: PRODUCT USED FOR UNKNOWN INDICATION
     Dosage: 400 MG, BID
  2. NUCALA [Suspect]
     Active Substance: MEPOLIZUMAB
     Indication: ASTHMA
     Dosage: 100 G, Z(MONTHLY)
     Route: 042
     Dates: start: 20190801
  3. MONTELUKAST [Suspect]
     Active Substance: MONTELUKAST SODIUM
     Indication: PRODUCT USED FOR UNKNOWN INDICATION
     Dosage: UNK
  4. ZENHALE [Suspect]
     Active Substance: FORMOTEROL FUMARATE\MOMETASONE FUROATE
     Indication: PRODUCT USED FOR UNKNOWN INDICATION
     Dosage: UNK
  5. SALBUTAMOL SULPHATE [Suspect]
     Active Substance: ALBUTEROL SULFATE
     Indication: PRODUCT USED FOR UNKNOWN INDICATION
     Dosage: UNK
  6. CLOBAZAM. [Suspect]
     Active Substance: CLOBAZAM
     Indication: PRODUCT USED FOR UNKNOWN INDICATION
     Dosage: 10 MG, QD

REACTIONS (16)
  - Obstructive airways disorder [Unknown]
  - Nephrolithiasis [Unknown]
  - Blood count abnormal [Unknown]
  - Dyspnoea [Unknown]
  - Pain in extremity [Unknown]
  - Cough [Unknown]
  - Burning sensation [Unknown]
  - Sneezing [Unknown]
  - Back pain [Recovered/Resolved]
  - Therapeutic product effect incomplete [Unknown]
  - Wheezing [Unknown]
  - Fatigue [Unknown]
  - Musculoskeletal pain [Unknown]
  - Asthma [Unknown]
  - Cystitis [Unknown]
  - Urinary tract infection [Unknown]
